FAERS Safety Report 12852394 (Version 2)
Quarter: 2016Q4

REPORT INFORMATION
  Report Type: Report from Study
  Country: AU (occurrence: AU)
  Receive Date: 20161017
  Receipt Date: 20161122
  Transmission Date: 20170207
  Serious: Yes (Other)
  Sender: FDA-Public Use
  Company Number: AU-VERTEX PHARMACEUTICALS-2016-005824

PATIENT
  Age: 53 Year
  Sex: Male

DRUGS (19)
  1. ORKAMBI [Suspect]
     Active Substance: IVACAFTOR\LUMACAFTOR
     Indication: CYSTIC FIBROSIS
     Dosage: 200/125 MG, BID
     Route: 048
     Dates: start: 20160912, end: 20161012
  2. VITABDECK [Concomitant]
     Dosage: 1 DF, BID
  3. SODIUM CHLORIDE. [Concomitant]
     Active Substance: SODIUM CHLORIDE
     Dosage: 2 TABS IN THE MONRING AND NIGHT AND ONE AT LUNCH
  4. PLAQUENIL [Concomitant]
     Active Substance: HYDROXYCHLOROQUINE SULFATE
     Indication: ARTHRITIS
     Dosage: 1 DF, QD (IN THE MORNING)
  5. NOVORAPID [Concomitant]
     Active Substance: INSULIN ASPART
     Indication: BLOOD GLUCOSE FLUCTUATION
     Dosage: 2 UNITS IN MORNING AND AT LUNCH AND 3 UNITS AT NIGHT
  6. LEVEMIR [Concomitant]
     Active Substance: INSULIN DETEMIR
     Indication: DIABETES MELLITUS
     Dosage: THREE UNITS IN THE MORNING
  7. ZITHROMAX [Concomitant]
     Active Substance: AZITHROMYCIN DIHYDRATE
     Dosage: 1 DF, MONDAY. WEDNESDAY, FRIDAY
  8. PREDNISOLONE. [Concomitant]
     Active Substance: PREDNISOLONE
     Indication: RESPIRATORY DISTRESS
     Dosage: 4 DF, QD (IN THE MORNING)
  9. PULMOZYME [Concomitant]
     Active Substance: DORNASE ALFA
     Indication: CYSTIC FIBROSIS
     Dosage: ONE NEB AT NIGHT
  10. INNER HEALTH PLUS [Concomitant]
     Dosage: 1 DF, QD (IN THE MORNING)
  11. ALENDRONATE [Concomitant]
     Active Substance: ALENDRONATE SODIUM
     Indication: OSTEOPOROSIS
     Dosage: 1 DF, QW
  12. VENTOLIN [Concomitant]
     Active Substance: ALBUTEROL SULFATE
     Dosage: 5 DF, BID
  13. HYPERSAL [Concomitant]
     Dosage: 4 ML, BID
  14. CREON [Concomitant]
     Active Substance: PANCRELIPASE AMYLASE\PANCRELIPASE LIPASE\PANCRELIPASE PROTEASE
     Dosage: 3 CAPSULE WITH MEALS AND 1-2 CAPSULES WITH SNACKS
  15. VITAMIN C [Concomitant]
     Active Substance: ASCORBIC ACID
     Dosage: 1 DF, BID
  16. MAGNESIUM [Concomitant]
     Active Substance: MAGNESIUM
     Dosage: 1 DF, QD (IN THE MORNING)
  17. OXIS [Concomitant]
     Active Substance: FORMOTEROL FUMARATE
     Dosage: 1 DF, BID
  18. KRILL OIL [Concomitant]
     Active Substance: DIETARY SUPPLEMENT
     Dosage: 1 DF, QD (IN THE MORNING)
  19. ZINCAPS [Concomitant]
     Dosage: 1 DF, QD (IN THE MORNING)

REACTIONS (3)
  - Respiratory distress [Not Recovered/Not Resolved]
  - Pulmonary function test decreased [Not Recovered/Not Resolved]
  - Respiration abnormal [Not Recovered/Not Resolved]

NARRATIVE: CASE EVENT DATE: 20160912
